FAERS Safety Report 12873882 (Version 3)
Quarter: 2017Q2

REPORT INFORMATION
  Report Type: Spontaneous
  Country: US (occurrence: US)
  Receive Date: 20161021
  Receipt Date: 20170421
  Transmission Date: 20170830
  Serious: Yes (Hospitalization, Other)
  Sender: FDA-Public Use
  Company Number: US-TEVA-704527USA

PATIENT
  Age: 56 Year
  Sex: Male

DRUGS (16)
  1. CLONAZEPAM. [Concomitant]
     Active Substance: CLONAZEPAM
     Dosage: 8 MILLIGRAM DAILY; BEDTIME
     Route: 048
  2. REQUIP [Concomitant]
     Active Substance: ROPINIROLE HYDROCHLORIDE
     Dosage: .5 MILLIGRAM DAILY; NIGHT
     Route: 048
  3. MULTIVITAMIN [Concomitant]
     Active Substance: VITAMINS
     Route: 048
  4. PLAVIX [Concomitant]
     Active Substance: CLOPIDOGREL BISULFATE
     Dosage: 75 MILLIGRAM DAILY; MORNING
  5. TRAZODONE [Concomitant]
     Active Substance: TRAZODONE HYDROCHLORIDE
     Dosage: 100 MILLIGRAM DAILY; NIGHT
  6. AMITRIPTYLINE [Concomitant]
     Active Substance: AMITRIPTYLINE
     Dosage: 25 MILLIGRAM DAILY; AT BEDTIME
  7. METOPROLOL. [Concomitant]
     Active Substance: METOPROLOL
     Dosage: 75 MILLIGRAM DAILY; MORNING
  8. PRAVASTATIN. [Concomitant]
     Active Substance: PRAVASTATIN
     Dosage: 2 MILLIGRAM DAILY; NIGHT
  9. LISINOPRIL. [Concomitant]
     Active Substance: LISINOPRIL
     Dosage: 20 MILLIGRAM DAILY; MORNING
     Route: 048
  10. NITROGLYCERIN. [Concomitant]
     Active Substance: NITROGLYCERIN
  11. GABAPENTIN. [Concomitant]
     Active Substance: GABAPENTIN
     Dosage: 600 MILLIGRAM DAILY;
     Route: 048
  12. ASPIRIN. [Concomitant]
     Active Substance: ASPIRIN
     Dosage: 81 MILLIGRAM DAILY; MORNING
  13. PROAIR HFA [Suspect]
     Active Substance: ALBUTEROL SULFATE
     Dosage: 1 PUFF
     Route: 065
  14. BUSPIRONE [Concomitant]
     Active Substance: BUSPIRONE HYDROCHLORIDE
     Dosage: 45 MILLIGRAM DAILY;
     Route: 048
  15. ANORO ELLIPTA [Concomitant]
     Active Substance: UMECLIDINIUM BROMIDE\VILANTEROL TRIFENATATE
     Dosage: 1 PUFF
     Route: 065
  16. CITALOPRAM [Concomitant]
     Active Substance: CITALOPRAM HYDROBROMIDE
     Dosage: 20 MILLIGRAM DAILY; MORNING

REACTIONS (7)
  - Product cleaning inadequate [Unknown]
  - Acute myocardial infarction [Recovered/Resolved]
  - Myocardial necrosis marker increased [Recovered/Resolved]
  - Product physical issue [Unknown]
  - Accidental overdose [Unknown]
  - Throat irritation [Recovered/Resolved]
  - Respiratory tract irritation [Recovered/Resolved]

NARRATIVE: CASE EVENT DATE: 20161011
